FAERS Safety Report 6537792-1 (Version None)
Quarter: 2010Q1

REPORT INFORMATION
  Report Type: 
  Country: None (occurrence: None)
  Receive Date: 20100114
  Receipt Date: 20100111
  Transmission Date: 20100710
  Serious: Yes (Other)
  Sender: FDA-Public Use
  Company Number: US-PFIZER INC-2009294927

PATIENT
  Sex: Female
  Weight: 81.633 kg

DRUGS (2)
  1. LYRICA [Suspect]
     Indication: FIBROMYALGIA
     Dosage: FREQUENCY: 2X/DAY,
     Route: 048
  2. MONTELUKAST [Concomitant]

REACTIONS (2)
  - CHOLELITHIASIS [None]
  - HEPATIC STEATOSIS [None]
